FAERS Safety Report 5830036-5 (Version None)
Quarter: 2008Q3

REPORT INFORMATION
  Report Type: 
  Country: None (occurrence: None)
  Receive Date: 20080801
  Receipt Date: 20080723
  Transmission Date: 20090109
  Serious: Yes (Other)
  Sender: FDA-Public Use
  Company Number: US-BAYER-200715974NA

PATIENT
  Age: 30 Year
  Sex: Female

DRUGS (15)
  1. MAGNEVIST [Suspect]
     Indication: NUCLEAR MAGNETIC RESONANCE IMAGING
     Route: 042
     Dates: start: 20031125, end: 20031125
  2. OMNISCAN [Suspect]
     Indication: NUCLEAR MAGNETIC RESONANCE IMAGING
     Route: 042
     Dates: start: 20030326, end: 20030326
  3. OMNISCAN [Suspect]
     Route: 042
     Dates: start: 20030404, end: 20030404
  4. OMNISCAN [Suspect]
     Route: 042
     Dates: start: 20030616, end: 20030616
  5. OPTIMARK [Suspect]
     Indication: NUCLEAR MAGNETIC RESONANCE IMAGING
     Route: 042
     Dates: start: 20000124, end: 20000124
  6. OPTIMARK [Suspect]
     Route: 042
     Dates: start: 20000125, end: 20000125
  7. OPTIMARK [Suspect]
     Route: 042
     Dates: start: 20000126, end: 20000126
  8. OPTIMARK [Suspect]
     Route: 042
     Dates: start: 20011219, end: 20011219
  9. OPTIMARK [Suspect]
     Route: 042
     Dates: start: 20011220, end: 20011220
  10. OPTIMARK [Suspect]
     Route: 042
     Dates: start: 20020104, end: 20020104
  11. OPTIMARK [Suspect]
     Route: 042
     Dates: start: 20020105, end: 20020105
  12. OPTIMARK [Suspect]
     Route: 042
     Dates: start: 20020114, end: 20020114
  13. OPTIMARK [Suspect]
     Route: 042
     Dates: start: 20021123, end: 20021123
  14. OPTIMARK [Suspect]
     Route: 042
     Dates: start: 20021124, end: 20021124
  15. MULTIHANCE [Suspect]
     Indication: NUCLEAR MAGNETIC RESONANCE IMAGING
     Route: 042
     Dates: start: 20051111, end: 20051111

REACTIONS (6)
  - FIBROSIS [None]
  - GENERAL PHYSICAL HEALTH DETERIORATION [None]
  - INJURY [None]
  - NEPHROGENIC SYSTEMIC FIBROSIS [None]
  - PAIN [None]
  - SCAR [None]
